FAERS Safety Report 7590626-9 (Version None)
Quarter: 2011Q3

REPORT INFORMATION
  Report Type: 
  Country: None (occurrence: None)
  Receive Date: 20110705
  Receipt Date: 20110628
  Transmission Date: 20111222
  Serious: No
  Sender: FDA-Public Use
  Company Number: US-B.I. PHARMACEUTICALS,INC./RIDGEFIELD-2011-BP-15126BP

PATIENT
  Sex: Male

DRUGS (7)
  1. PRADAXA [Suspect]
     Indication: ATRIAL FIBRILLATION
     Dosage: 300 MG
     Dates: start: 20110513, end: 20110606
  2. LISINOPRIL [Concomitant]
     Dosage: 10 MG
     Dates: start: 20100720
  3. ASPIRIN [Concomitant]
     Dosage: 81 MG
     Dates: start: 20080101
  4. AMIODARONE HCL [Concomitant]
     Dates: start: 20110127
  5. FISH OIL [Concomitant]
     Dosage: 2400 MG
  6. EZETIMIBE [Concomitant]
     Dates: start: 20080101
  7. PRADAXA [Suspect]
     Indication: CEREBROVASCULAR ACCIDENT

REACTIONS (5)
  - BALANCE DISORDER [None]
  - DIZZINESS [None]
  - HEADACHE [None]
  - VERTIGO [None]
  - CONFUSIONAL STATE [None]
